FAERS Safety Report 8595079-X (Version None)
Quarter: 2012Q3

REPORT INFORMATION
  Report Type: 
  Country: None (occurrence: None)
  Receive Date: 20120815
  Receipt Date: 20120808
  Transmission Date: 20120928
  Serious: Yes (Hospitalization)
  Sender: FDA-Public Use
  Company Number: US-GENZYME-CAMP-1002279

PATIENT
  Sex: Female
  Weight: 60.726 kg

DRUGS (9)
  1. ALEMTUZUMAB [Suspect]
     Indication: MULTIPLE SCLEROSIS
     Dosage: 24 MG, QD
     Route: 042
     Dates: start: 20100331, end: 20100402
  2. METHYLPREDNISOLONE [Concomitant]
     Dosage: 1 G, QD
     Route: 042
     Dates: start: 20090403, end: 20090403
  3. METHYLPREDNISOLONE [Concomitant]
     Dosage: 1 G, QD
     Route: 042
     Dates: start: 20100331, end: 20100402
  4. ZOFRAN [Concomitant]
     Indication: ADVERSE EVENT
     Dosage: 8 MG, PRN
     Route: 048
     Dates: start: 20120606
  5. ALEMTUZUMAB [Suspect]
     Dosage: 24 MG, QD
     Route: 042
     Dates: start: 20090327, end: 20090327
  6. ALEMTUZUMAB [Suspect]
     Dosage: 24 MG, QD
     Route: 042
     Dates: start: 20090403, end: 20090403
  7. METHYLPREDNISOLONE [Concomitant]
     Indication: PRODUCT USED FOR UNKNOWN INDICATION
     Dosage: 1 G, QD
     Route: 042
     Dates: start: 20090327, end: 20090327
  8. ALEMTUZUMAB [Suspect]
     Dosage: 24 MG, QD
     Route: 042
     Dates: start: 20090330, end: 20090401
  9. METHYLPREDNISOLONE [Concomitant]
     Dosage: 1 G, QD
     Route: 042
     Dates: start: 20090330, end: 20090401

REACTIONS (1)
  - URINARY TRACT INFECTION [None]
